FAERS Safety Report 6752839-5 (Version None)
Quarter: 2010Q2

REPORT INFORMATION
  Report Type: 
  Country: None (occurrence: None)
  Receive Date: 20100603
  Receipt Date: 20100525
  Transmission Date: 20101027
  Serious: Yes (Hospitalization, Other)
  Sender: FDA-Public Use
  Company Number: US-BIOGENIDEC-2010BI013677

PATIENT
  Age: 47 Year
  Sex: Female
  Weight: 51 kg

DRUGS (2)
  1. AVONEX [Suspect]
     Indication: MULTIPLE SCLEROSIS
     Route: 030
     Dates: start: 20100101
  2. AVONEX [Suspect]
     Route: 030
     Dates: start: 20070601

REACTIONS (4)
  - ABDOMINAL PAIN UPPER [None]
  - BRAIN NEOPLASM [None]
  - COLORECTAL CANCER METASTATIC [None]
  - HAEMORRHOIDS [None]
